FAERS Safety Report 5371643-6 (Version None)
Quarter: 2007Q2

REPORT INFORMATION
  Report Type: 
  Country: None (occurrence: None)
  Receive Date: 20070615
  Receipt Date: 20060518
  Transmission Date: 20071010
  Serious: Yes (Other)
  Sender: FDA-Public Use
  Company Number: 200613167US

PATIENT
  Age: 69 Year
  Sex: Female

DRUGS (4)
  1. LANTUS [Suspect]
     Indication: DIABETES MELLITUS INSULIN-DEPENDENT
     Dosage: 20 U
     Dates: start: 20060329
  2. LANTUS [Suspect]
     Dates: start: 20060329
  3. HYPERTENSION MEDICATIONS [Concomitant]
  4. CHOLESTEROL MEDICATION NOS [Concomitant]

REACTIONS (1)
  - HYPERGLYCAEMIA [None]
